FAERS Safety Report 8030566-4 (Version None)
Quarter: 2012Q1

REPORT INFORMATION
  Report Type: 
  Country: None (occurrence: None)
  Receive Date: 20120105
  Receipt Date: 20111223
  Transmission Date: 20120608
  Serious: Yes (Other)
  Sender: FDA-Public Use
  Company Number: 2011AP003185

PATIENT
  Age: 75 Year
  Sex: Male
  Weight: 103.4201 kg

DRUGS (4)
  1. QUINAPRIL HCL [Suspect]
     Indication: HYPERTENSION
  2. LATANOPROST [Suspect]
     Indication: PRODUCT USED FOR UNKNOWN INDICATION
  3. ATENOLOL [Suspect]
     Indication: PRODUCT USED FOR UNKNOWN INDICATION
  4. AMLODIPINE BESYLATE [Suspect]
     Indication: PRODUCT USED FOR UNKNOWN INDICATION

REACTIONS (1)
  - HYPERSENSITIVITY [None]
